FAERS Safety Report 8849171 (Version 1)
Quarter: 2012Q4

REPORT INFORMATION
  Report Type: Spontaneous
  Country: US (occurrence: None)
  Receive Date: 20121017
  Receipt Date: 20121017
  Transmission Date: 20130627
  Serious: Yes (Other)
  Sender: FDA-Public Use
  Company Number: 2012P1060762

PATIENT
  Age: 49 Year
  Sex: Female
  Weight: 67.13 kg

DRUGS (5)
  1. PREDNISOLONE [Suspect]
     Indication: MIGRAINE
     Route: 048
     Dates: start: 2000
  2. CLINDAMICINA COMBINO PHARM [Suspect]
     Indication: TOOTH ABSCESS
  3. ZYBAN [Suspect]
     Indication: SMOKING CESSATION THERAPY
     Dates: start: 2000
  4. UNKNOWN ANTIBIOTICS [Suspect]
     Indication: SINUS INFECTION
  5. AZITHROMYCIN [Suspect]
     Indication: SINUS INFECTION

REACTIONS (22)
  - Migraine [None]
  - Tooth abscess [None]
  - Urticaria [None]
  - Pruritus generalised [None]
  - Delusion [None]
  - Joint injury [None]
  - Swelling face [None]
  - Generalised oedema [None]
  - Sinusitis [None]
  - Pharyngeal disorder [None]
  - Paraesthesia [None]
  - Heart rate increased [None]
  - Vomiting [None]
  - Diarrhoea [None]
  - Fatigue [None]
  - Hypoaesthesia [None]
  - Pallor [None]
  - Dark circles under eyes [None]
  - Coeliac disease [None]
  - Abdominal pain upper [None]
  - Disorientation [None]
  - Speech disorder [None]
